FAERS Safety Report 11326546 (Version 1)
Quarter: 2015Q3

REPORT INFORMATION
  Report Type: Spontaneous
  Country: US (occurrence: US)
  Receive Date: 20150731
  Receipt Date: 20150731
  Transmission Date: 20151125
  Serious: Yes (Life-Threatening, Other)
  Sender: FDA-Public Use
  Company Number: US-ROCHE-1615431

PATIENT
  Age: 44 Year
  Sex: Female

DRUGS (1)
  1. XOLAIR [Suspect]
     Active Substance: OMALIZUMAB
     Indication: ASTHMA
     Route: 058

REACTIONS (11)
  - Colon cancer [Recovered/Resolved]
  - Dysphonia [Unknown]
  - Weight increased [Unknown]
  - Fall [Unknown]
  - Cataract [Unknown]
  - Malaise [Unknown]
  - Fatigue [Unknown]
  - Tooth injury [Unknown]
  - Anaphylactic reaction [Recovered/Resolved]
  - Dyspnoea [Unknown]
  - Weight decreased [Unknown]
